FAERS Safety Report 18547739 (Version 1)
Quarter: 2020Q4

REPORT INFORMATION
  Report Type: Spontaneous
  Country: US (occurrence: US)
  Receive Date: 20201126
  Receipt Date: 20201126
  Transmission Date: 20210114
  Serious: Yes (Other)
  Sender: FDA-Public Use
  Company Number: US-ROCHE-2718200

PATIENT
  Sex: Female
  Weight: 82.17 kg

DRUGS (5)
  1. ESBRIET [Suspect]
     Active Substance: PIRFENIDONE
     Dosage: THREE PILLS THREE TIMES DAILY
     Route: 048
     Dates: end: 20201026
  2. ESBRIET [Suspect]
     Active Substance: PIRFENIDONE
     Indication: IDIOPATHIC PULMONARY FIBROSIS
     Route: 048
     Dates: start: 20201012
  3. ESBRIET [Suspect]
     Active Substance: PIRFENIDONE
     Dosage: TWO PILLS THREE TIMES DAILY
     Route: 048
  4. ESBRIET [Suspect]
     Active Substance: PIRFENIDONE
     Dosage: ONE PILL THREE TIMES DAILY
     Route: 048
     Dates: start: 202011
  5. ESBRIET [Suspect]
     Active Substance: PIRFENIDONE
     Dosage: TWO PILLS, THREE TIMES DAILY
     Route: 048
     Dates: start: 20201109

REACTIONS (3)
  - Diarrhoea [Not Recovered/Not Resolved]
  - Arteriosclerosis coronary artery [Unknown]
  - Nausea [Not Recovered/Not Resolved]
